FAERS Safety Report 11142449 (Version 6)
Quarter: 2016Q1

REPORT INFORMATION
  Report Type: Report from Study
  Country: DE (occurrence: DE)
  Receive Date: 20150527
  Receipt Date: 20160310
  Transmission Date: 20160525
  Serious: Yes (Hospitalization, Other)
  Sender: FDA-Public Use
  Company Number: DE-INCYTE CORPORATION-2015IN002114

PATIENT
  Age: 78 Year
  Sex: Male
  Weight: 69 kg

DRUGS (79)
  1. JAKAFI [Suspect]
     Active Substance: RUXOLITINIB
     Dosage: 15 MG, BID
     Route: 048
     Dates: start: 20140813, end: 20141008
  2. BERODUAL N [Concomitant]
     Active Substance: FENOTEROL HYDROBROMIDE\IPRATROPIUM BROMIDE
     Indication: PRODUCT USED FOR UNKNOWN INDICATION
     Dosage: UNK
     Route: 065
  3. BERODUAL N [Concomitant]
     Active Substance: FENOTEROL HYDROBROMIDE\IPRATROPIUM BROMIDE
     Indication: CHRONIC OBSTRUCTIVE PULMONARY DISEASE
     Dosage: 80 UG, UNK
     Route: 055
  4. BISOPROLOL [Concomitant]
     Active Substance: BISOPROLOL
     Indication: HYPERTENSION
     Dosage: 7.5 MG, QD
     Route: 048
  5. CANDESARTAN ABZ [Concomitant]
     Indication: HYPERTENSION
     Dosage: 15 MG, UNK
     Route: 048
  6. TORASEMIDE [Concomitant]
     Active Substance: TORSEMIDE
     Indication: HYPERTENSION
     Dosage: 15 MG, QD
     Route: 048
  7. SIMVASTATIN. [Concomitant]
     Active Substance: SIMVASTATIN
     Indication: PRODUCT USED FOR UNKNOWN INDICATION
     Dosage: 10 MG
     Route: 065
  8. SIMVASTATIN. [Concomitant]
     Active Substance: SIMVASTATIN
     Dosage: 10 MG, QD
     Route: 048
  9. ALLOPURINOL. [Concomitant]
     Active Substance: ALLOPURINOL
     Dosage: 300 MG, QD
     Route: 065
  10. TAXOFIT MULTIVITAMIN [Concomitant]
     Route: 048
  11. OME NERTON [Concomitant]
     Dosage: 20-40 MG, PRN
     Route: 048
  12. OME NERTON [Concomitant]
     Dosage: 20-40 MG, PRN
     Route: 048
  13. CYCLOCAPRON [Concomitant]
     Active Substance: TRANEXAMIC ACID
     Indication: PROPHYLAXIS
  14. JAKAFI [Suspect]
     Active Substance: RUXOLITINIB
     Dosage: 10 MG, BID
     Route: 048
     Dates: start: 20140702, end: 20140715
  15. JAKAFI [Suspect]
     Active Substance: RUXOLITINIB
     Dosage: 5 MG, BID
     Route: 048
     Dates: start: 20141020, end: 20150923
  16. BERODUAL N [Concomitant]
     Active Substance: FENOTEROL HYDROBROMIDE\IPRATROPIUM BROMIDE
     Dosage: 80 UG, UNK
     Route: 055
  17. SPIRIVA [Concomitant]
     Active Substance: TIOTROPIUM BROMIDE MONOHYDRATE
     Indication: CHRONIC OBSTRUCTIVE PULMONARY DISEASE
     Dosage: 18 UG, QD
     Route: 048
  18. NOVAMINSULFON 1 A PHARMA [Concomitant]
     Dosage: 500 MG, PRN (1-1-1)
     Route: 048
  19. XARELTO [Concomitant]
     Active Substance: RIVAROXABAN
     Indication: ATRIAL FIBRILLATION
  20. BISOPROLOL [Concomitant]
     Active Substance: BISOPROLOL
     Indication: PRODUCT USED FOR UNKNOWN INDICATION
     Dosage: 5 MG
     Route: 065
  21. BISOPROLOL [Concomitant]
     Active Substance: BISOPROLOL
     Dosage: 7.5 MG, QD
     Route: 048
  22. TORASEMIDE [Concomitant]
     Active Substance: TORSEMIDE
     Indication: PRODUCT USED FOR UNKNOWN INDICATION
     Dosage: 10 MG
     Route: 065
  23. TAXOFIT MULTIVITAMIN [Concomitant]
     Route: 048
  24. DECODERM TRI [Concomitant]
     Active Substance: FLUPREDNIDENE ACETATE\MICONAZOLE NITRATE
     Dosage: UNK
     Route: 061
  25. CODEIN [Concomitant]
     Active Substance: CODEINE
     Indication: PAIN PROPHYLAXIS
     Dosage: PRN
     Route: 065
     Dates: start: 20150316
  26. BERODUAL N [Concomitant]
     Active Substance: FENOTEROL HYDROBROMIDE\IPRATROPIUM BROMIDE
     Dosage: 80 UG, UNK
     Route: 055
  27. BECLOMETASONE [Concomitant]
     Active Substance: BECLOMETHASONE DIPROPIONATE
     Dosage: UNK UNK, PRN (100-200 UG)
     Route: 055
  28. BECLOMETASONE [Concomitant]
     Active Substance: BECLOMETHASONE DIPROPIONATE
     Dosage: UNK UNK, PRN (100-200 UG)
     Route: 055
  29. FENTANYL HEXAL [Concomitant]
     Active Substance: FENTANYL
     Dosage: 25 UG, Q72H
     Route: 062
  30. IBUPROFEN. [Concomitant]
     Active Substance: IBUPROFEN
     Dosage: 600 MG, PRN (1-0-1)
     Route: 048
  31. TORASEMIDE [Concomitant]
     Active Substance: TORSEMIDE
     Dosage: 15 MG, QD
     Route: 048
  32. FOSAVANCE [Concomitant]
     Active Substance: ALENDRONATE SODIUM\CHOLECALCIFEROL
     Dosage: 1 DF (70 MG/5.600 IU), PER WEEK
  33. SIMVASTATIN. [Concomitant]
     Active Substance: SIMVASTATIN
     Indication: HYPERCHOLESTEROLAEMIA
     Dosage: 10 MG, QD
     Route: 048
  34. MCP [Concomitant]
     Active Substance: METOCLOPRAMIDE HYDROCHLORIDE
     Dosage: 30-90 DROPS, PRN
     Route: 048
  35. DECODERM TRI [Concomitant]
     Active Substance: FLUPREDNIDENE ACETATE\MICONAZOLE NITRATE
     Dosage: UNK
     Route: 061
  36. DECODERM TRI [Concomitant]
     Active Substance: FLUPREDNIDENE ACETATE\MICONAZOLE NITRATE
     Dosage: UNK
     Route: 061
  37. UNACID PD//SULTAMICILLIN [Concomitant]
     Indication: PRODUCT USED FOR UNKNOWN INDICATION
     Dosage: 2 DF, QD
     Route: 065
     Dates: start: 20150325
  38. JAKAFI [Suspect]
     Active Substance: RUXOLITINIB
     Dosage: 30 MG PER DAY (15 MG BID)
     Route: 048
     Dates: start: 20150924, end: 20151125
  39. BECLOMETASONE [Concomitant]
     Active Substance: BECLOMETHASONE DIPROPIONATE
     Indication: CHRONIC OBSTRUCTIVE PULMONARY DISEASE
     Dosage: 100-200 UG, PRN
     Route: 055
  40. XARELTO [Concomitant]
     Active Substance: RIVAROXABAN
     Indication: PRODUCT USED FOR UNKNOWN INDICATION
     Dosage: 15 MG, QD
     Route: 048
     Dates: end: 20141021
  41. BISOPROLOL [Concomitant]
     Active Substance: BISOPROLOL
     Indication: CORONARY ARTERY DISEASE
     Dosage: 7.5 MG, QD
     Route: 048
  42. TORASEMIDE [Concomitant]
     Active Substance: TORSEMIDE
     Dosage: 20 MG, UNK
     Route: 048
     Dates: start: 20150629, end: 20150716
  43. FOSAVANCE [Concomitant]
     Active Substance: ALENDRONATE SODIUM\CHOLECALCIFEROL
     Indication: PRODUCT USED FOR UNKNOWN INDICATION
     Dosage: UNK
     Route: 065
  44. ALLOPURINOL. [Concomitant]
     Active Substance: ALLOPURINOL
     Indication: HYPERURICAEMIA
     Dosage: 300 MG, QD
     Route: 065
  45. DECODERM TRI [Concomitant]
     Active Substance: FLUPREDNIDENE ACETATE\MICONAZOLE NITRATE
     Indication: PRODUCT USED FOR UNKNOWN INDICATION
     Dosage: UNK
     Route: 065
  46. CYCLOCAPRON [Concomitant]
     Active Substance: TRANEXAMIC ACID
     Indication: PRODUCT USED FOR UNKNOWN INDICATION
     Dosage: UNK
     Route: 048
     Dates: start: 20140806
  47. NOCTAMID [Concomitant]
     Active Substance: LORMETAZEPAM
     Indication: INSOMNIA
     Dosage: 1 MG, PRN
     Route: 065
     Dates: start: 20140917
  48. SPIRIVA [Concomitant]
     Active Substance: TIOTROPIUM BROMIDE MONOHYDRATE
     Indication: PRODUCT USED FOR UNKNOWN INDICATION
     Dosage: 18 UG
  49. ALLOPURINOL. [Concomitant]
     Active Substance: ALLOPURINOL
     Dosage: 300 MG, QD
     Route: 065
  50. MULTILIND HEILSALBE MIT NYSTATIN [Concomitant]
     Indication: PRODUCT USED FOR UNKNOWN INDICATION
     Dosage: UNK
     Route: 061
     Dates: start: 20130916
  51. NOCTAMID [Concomitant]
     Active Substance: LORMETAZEPAM
     Dosage: 1 MG, UNK
     Route: 065
     Dates: start: 20150121
  52. JAKAFI [Suspect]
     Active Substance: RUXOLITINIB
     Dosage: 15 MG, BID
     Route: 048
     Dates: start: 20140716, end: 20140808
  53. FENTANYL HEXAL [Concomitant]
     Active Substance: FENTANYL
     Indication: PRODUCT USED FOR UNKNOWN INDICATION
     Dosage: UNK
     Route: 065
  54. FENTANYL HEXAL [Concomitant]
     Active Substance: FENTANYL
     Dosage: 25 UG, Q72H
     Route: 062
  55. TAXOFIT MULTIVITAMIN [Concomitant]
     Route: 048
  56. HYROXICARBAMIDA [Concomitant]
     Indication: MYELOFIBROSIS
     Dosage: 1000 MG, UNK
     Route: 048
     Dates: start: 20140809, end: 20140813
  57. SPIRIVA [Concomitant]
     Active Substance: TIOTROPIUM BROMIDE MONOHYDRATE
     Dosage: 18 UG, QD
     Route: 048
  58. BECLOMETASONE [Concomitant]
     Active Substance: BECLOMETHASONE DIPROPIONATE
     Indication: PRODUCT USED FOR UNKNOWN INDICATION
     Dosage: 0.10 MG
     Route: 065
  59. NOVAMINSULFON 1 A PHARMA [Concomitant]
     Indication: PRODUCT USED FOR UNKNOWN INDICATION
     Dosage: 50 U
     Route: 065
  60. IBUPROFEN. [Concomitant]
     Active Substance: IBUPROFEN
     Indication: PRODUCT USED FOR UNKNOWN INDICATION
     Dosage: 600 MG
     Route: 065
  61. IBUPROFEN. [Concomitant]
     Active Substance: IBUPROFEN
     Dosage: 600 MG, PRN (1-0-1)
     Route: 048
  62. XARELTO [Concomitant]
     Active Substance: RIVAROXABAN
     Indication: CEREBROVASCULAR ACCIDENT
  63. CANDESARTAN ABZ [Concomitant]
     Indication: PRODUCT USED FOR UNKNOWN INDICATION
     Dosage: UNK
     Route: 065
  64. TORASEMIDE [Concomitant]
     Active Substance: TORSEMIDE
     Dosage: 15 MG, QD
     Route: 048
  65. ALLOPURINOL. [Concomitant]
     Active Substance: ALLOPURINOL
     Indication: PRODUCT USED FOR UNKNOWN INDICATION
     Dosage: 300 MG
     Route: 065
  66. TAXOFIT MULTIVITAMIN [Concomitant]
     Indication: PRODUCT USED FOR UNKNOWN INDICATION
     Dosage: UNK
     Route: 065
  67. OME NERTON [Concomitant]
     Indication: PRODUCT USED FOR UNKNOWN INDICATION
     Dosage: 20 MG
     Route: 065
  68. MCP [Concomitant]
     Active Substance: METOCLOPRAMIDE HYDROCHLORIDE
     Indication: PRODUCT USED FOR UNKNOWN INDICATION
     Dosage: 5 MG/ML
     Route: 065
  69. JAKAFI [Suspect]
     Active Substance: RUXOLITINIB
     Indication: PRIMARY MYELOFIBROSIS
     Dosage: 5 MG, BID
     Route: 048
     Dates: start: 20140611, end: 20140701
  70. FENTANYL HEXAL [Concomitant]
     Active Substance: FENTANYL
     Dosage: 25 UG, Q72H
     Route: 062
  71. IBUPROFEN. [Concomitant]
     Active Substance: IBUPROFEN
     Dosage: 600 MG, PRN (1-0-1)
     Route: 048
  72. TORASEMIDE [Concomitant]
     Active Substance: TORSEMIDE
     Dosage: 40 MG, UNK
     Route: 048
     Dates: start: 20150615, end: 20150629
  73. FOSAVANCE [Concomitant]
     Active Substance: ALENDRONATE SODIUM\CHOLECALCIFEROL
     Indication: OSTEOPOROSIS
     Dosage: 70 MG/5.600 IU PER WEEK
     Route: 065
  74. FOSAVANCE [Concomitant]
     Active Substance: ALENDRONATE SODIUM\CHOLECALCIFEROL
     Dosage: 1 DF (70 MG/5.600 IU), PER WEEK
  75. SIMVASTATIN. [Concomitant]
     Active Substance: SIMVASTATIN
     Dosage: 10 MG, QD
     Route: 048
  76. OME NERTON [Concomitant]
     Dosage: 20-40 MG, PRN
     Route: 048
  77. MULTILIND HEILSALBE MIT NYSTATIN [Concomitant]
     Indication: ANAL PRURITUS
  78. LORMETAZEPAM [Concomitant]
     Active Substance: LORMETAZEPAM
     Indication: PRODUCT USED FOR UNKNOWN INDICATION
     Dosage: 1 MG, UNK
     Route: 065
     Dates: start: 20150121
  79. ARANESP [Concomitant]
     Active Substance: DARBEPOETIN ALFA
     Indication: MYELOFIBROSIS
     Dosage: 500 UG, TIW
     Route: 065
     Dates: start: 20140924, end: 20150323

REACTIONS (6)
  - Rectal haemorrhage [Recovered/Resolved]
  - Haemoglobin decreased [Unknown]
  - Thrombocytopenia [Not Recovered/Not Resolved]
  - Gastric cyst [Recovered/Resolved]
  - Leukocytosis [Not Recovered/Not Resolved]
  - Iron overload [Not Recovered/Not Resolved]

NARRATIVE: CASE EVENT DATE: 20140716
